FAERS Safety Report 7872017-6 (Version None)
Quarter: 2011Q4

REPORT INFORMATION
  Report Type: 
  Country: None (occurrence: None)
  Receive Date: 20111029
  Receipt Date: 20110311
  Transmission Date: 20120403
  Serious: No
  Sender: FDA-Public Use
  Company Number: US-AMGEN-USASP2011013760

PATIENT
  Age: 49 Year
  Sex: Female

DRUGS (1)
  1. ENBREL [Suspect]
     Indication: RHEUMATOID ARTHRITIS
     Dosage: UNK
     Dates: start: 20091120, end: 20110301

REACTIONS (7)
  - DIARRHOEA [None]
  - VOMITING [None]
  - VISION BLURRED [None]
  - INFLUENZA [None]
  - HEADACHE [None]
  - NAUSEA [None]
  - HYPOAESTHESIA [None]
